FAERS Safety Report 16544021 (Version 1)
Quarter: 2019Q3

REPORT INFORMATION
  Report Type: Spontaneous
  Country: DE (occurrence: DE)
  Receive Date: 20190709
  Receipt Date: 20190709
  Transmission Date: 20191004
  Serious: Yes (Other)
  Sender: FDA-Public Use
  Company Number: DE-SA-2019SA181265

PATIENT
  Sex: Female

DRUGS (1)
  1. ENOXAPARIN SODIUM. [Suspect]
     Active Substance: ENOXAPARIN SODIUM
     Indication: EMBOLISM

REACTIONS (6)
  - Developmental delay [Unknown]
  - Cerebral disorder [Unknown]
  - Porencephaly [Unknown]
  - Hemiparesis [Unknown]
  - Infantile spasms [Recovered/Resolved]
  - Reperfusion injury [Unknown]
